FAERS Safety Report 6181471-X (Version None)
Quarter: 2009Q2

REPORT INFORMATION
  Report Type: 
  Country: None (occurrence: None)
  Receive Date: 20090505
  Receipt Date: 20090505
  Transmission Date: 20091009
  Serious: Yes (Hospitalization)
  Sender: FDA-Public Use
  Company Number: None

PATIENT
  Sex: Male
  Weight: 64.3 kg

DRUGS (4)
  1. TEMOZOLOMIDE [Suspect]
     Indication: ACUTE MYELOID LEUKAEMIA
     Dosage: 100MG/M2 QD PO
     Route: 048
     Dates: start: 20090417, end: 20090501
  2. METHOTREXATE [Concomitant]
  3. AVODART [Concomitant]
  4. ADVAIR HFA [Concomitant]

REACTIONS (1)
  - PYREXIA [None]
